FAERS Safety Report 8449931-6 (Version None)
Quarter: 2012Q2

REPORT INFORMATION
  Report Type: 
  Country: None (occurrence: None)
  Receive Date: 20120620
  Receipt Date: 20120614
  Transmission Date: 20120825
  Serious: Yes (Other)
  Sender: FDA-Public Use
  Company Number: PHHO2012US009012

PATIENT
  Age: 62 Year
  Sex: Male
  Weight: 86.36 kg

DRUGS (1)
  1. ZOLEDRONOC ACID [Suspect]
     Indication: METASTASES TO BONE
     Dosage: 4 MG, QW4
     Route: 017
     Dates: start: 20100329, end: 20120309

REACTIONS (1)
  - OSTEONECROSIS OF JAW [None]
